FAERS Safety Report 20156785 (Version 1)
Quarter: 2021Q4

REPORT INFORMATION
  Report Type: Spontaneous
  Country: US (occurrence: US)
  Receive Date: 20211207
  Receipt Date: 20211207
  Transmission Date: 20220304
  Serious: Yes (Other)
  Sender: FDA-Public Use
  Company Number: US-KYOWAKIRIN-2021BKK020322

PATIENT

DRUGS (2)
  1. CRYSVITA [Suspect]
     Active Substance: BUROSUMAB-TWZA
     Indication: Phosphorus metabolism disorder
     Dosage: STRENGTH 30 AND 10 MG/ML COMBINED TO ACHIEVE DOSE OF 35 MG, EVERY 2 WEEKS
     Route: 058
     Dates: start: 20191202
  2. CRYSVITA [Suspect]
     Active Substance: BUROSUMAB-TWZA
     Indication: Phosphorus metabolism disorder
     Dosage: STRENGTH 30 AND 10 MG/ML COMBINED TO ACHIEVE DOSE OF 35 MG, EVERY 2 WEEKS
     Route: 058
     Dates: start: 20191202

REACTIONS (5)
  - Therapeutic procedure [Unknown]
  - Exercise tolerance decreased [Not Recovered/Not Resolved]
  - Asthenia [Not Recovered/Not Resolved]
  - Arthralgia [Not Recovered/Not Resolved]
  - Tooth abscess [Not Recovered/Not Resolved]
